FAERS Safety Report 19616054 (Version 2)
Quarter: 2021Q3

REPORT INFORMATION
  Report Type: Spontaneous
  Country: US (occurrence: US)
  Receive Date: 20210727
  Receipt Date: 20210830
  Transmission Date: 20211014
  Serious: Yes (Other)
  Sender: FDA-Public Use
  Company Number: US-BAUSCH-BL-2021-026111

PATIENT

DRUGS (3)
  1. COVID?19 VACCINE NOS. [Suspect]
     Active Substance: COVID-19 VACCINE NOS
     Dosage: 2 SHOT,
     Route: 065
     Dates: start: 20210529, end: 20210529
  2. TRULANCE [Suspect]
     Active Substance: PLECANATIDE
     Indication: ILL-DEFINED DISORDER
     Dosage: OVER A MONTH AGO
     Route: 065
     Dates: start: 2021
  3. COVID?19 VACCINE NOS. [Suspect]
     Active Substance: COVID-19 VACCINE NOS
     Indication: COVID-19 PROPHYLAXIS
     Dosage: 1 SHOT,
     Route: 065
     Dates: start: 20210429, end: 20210429

REACTIONS (6)
  - Near death experience [Unknown]
  - Pain [Not Recovered/Not Resolved]
  - Peripheral swelling [Not Recovered/Not Resolved]
  - Therapeutic product effect decreased [Unknown]
  - Abdominal distension [Not Recovered/Not Resolved]
  - Ill-defined disorder [Unknown]

NARRATIVE: CASE EVENT DATE: 2021
